FAERS Safety Report 16683856 (Version 2)
Quarter: 2019Q4

REPORT INFORMATION
  Report Type: Spontaneous
  Country: IT (occurrence: IT)
  Receive Date: 20190808
  Receipt Date: 20191028
  Transmission Date: 20200122
  Serious: Yes (Life-Threatening, Other)
  Sender: FDA-Public Use
  Company Number: IT-TESARO-2019-TSO02795-IT

PATIENT
  Sex: Female

DRUGS (1)
  1. ZEJULA [Suspect]
     Active Substance: NIRAPARIB
     Indication: PERITONEAL CARCINOMA METASTATIC
     Dosage: 3 DF, UNK
     Route: 048
     Dates: start: 20190705, end: 20190731

REACTIONS (1)
  - Pancytopenia [Not Recovered/Not Resolved]

NARRATIVE: CASE EVENT DATE: 20190727
